APPROVED DRUG PRODUCT: CLOBETASOL PROPIONATE
Active Ingredient: CLOBETASOL PROPIONATE
Strength: 0.05%
Dosage Form/Route: SOLUTION;TOPICAL
Application: A076977 | Product #001 | TE Code: AT
Applicant: ENCUBE ETHICALS PRIVATE LTD
Approved: Aug 5, 2005 | RLD: No | RS: No | Type: RX